FAERS Safety Report 4870133-4 (Version None)
Quarter: 2005Q4

REPORT INFORMATION
  Report Type: 
  Country: None (occurrence: None)
  Receive Date: 20051227
  Receipt Date: 20051215
  Transmission Date: 20060501
  Serious: Yes (Hospitalization)
  Sender: FDA-Public Use
  Company Number: 2005-135871-NL

PATIENT
  Age: 32 Year
  Sex: Female

DRUGS (2)
  1. MENOTROPINS [Suspect]
     Dosage: DF
     Dates: start: 20040712
  2. CHORIONIC GONDADOTROPHIN [Suspect]
     Dosage: DF
     Dates: start: 20040712

REACTIONS (17)
  - BLOOD LACTATE DEHYDROGENASE INCREASED [None]
  - BLOOD UREA DECREASED [None]
  - CARBOHYDRATE ANTIGEN 125 INCREASED [None]
  - CYST [None]
  - ENDOMETRIAL DISORDER [None]
  - ENTEROCOCCAL INFECTION [None]
  - ESCHERICHIA INFECTION [None]
  - OVARIAN ABSCESS [None]
  - OVARIAN ENLARGEMENT [None]
  - PERITONITIS [None]
  - POST PROCEDURAL COMPLICATION [None]
  - SALPINGITIS [None]
  - STAPHYLOCOCCAL INFECTION [None]
  - STREPTOCOCCAL INFECTION [None]
  - UTERINE LEIOMYOMA [None]
  - VAGINAL CYST [None]
  - VAGINAL DISCHARGE [None]
